FAERS Safety Report 4363430-2 (Version None)
Quarter: 2004Q2

REPORT INFORMATION
  Report Type: 
  Country: None (occurrence: None)
  Receive Date: 20040524
  Receipt Date: 20040428
  Transmission Date: 20050107
  Serious: Yes (Hospitalization)
  Sender: FDA-Public Use
  Company Number: JP-GLAXOSMITHKLINE-B0331949A

PATIENT
  Age: 85 Year
  Sex: Female
  Weight: 32 kg

DRUGS (5)
  1. PAXIL [Suspect]
     Indication: DEPRESSION
     Dosage: 10MG PER DAY
     Route: 048
     Dates: start: 20040413, end: 20040419
  2. DIOVAN [Suspect]
     Dosage: 80MG PER DAY
     Route: 048
     Dates: start: 20040329, end: 20040419
  3. HALCION [Concomitant]
     Indication: INSOMNIA
     Dosage: .125MG PER DAY
     Route: 048
  4. ALPRAZOLAM [Concomitant]
     Indication: DEPRESSION
     Dosage: 1.2MG PER DAY
     Route: 048
  5. AMLODIPINE [Concomitant]
     Indication: HYPERTENSION
     Dosage: 5MG PER DAY
     Route: 048
     Dates: start: 20040420

REACTIONS (2)
  - ANOREXIA [None]
  - HYPONATRAEMIA [None]
